FAERS Safety Report 5361936-0 (Version None)
Quarter: 2007Q2

REPORT INFORMATION
  Report Type: 
  Country: None (occurrence: None)
  Receive Date: 20070615
  Receipt Date: 20070615
  Transmission Date: 20071010
  Serious: Yes (Other)
  Sender: FDA-Public Use
  Company Number: None

PATIENT
  Age: 67 Year
  Sex: Female

DRUGS (16)
  1. AUGMENTIN '125' [Suspect]
     Dosage: 500/125 PO
     Route: 048
     Dates: start: 20060721, end: 20060807
  2. CIPROFLOXACIN [Suspect]
     Dosage: 500 MG IV
     Route: 042
     Dates: start: 20060721, end: 20060722
  3. AVELOX [Suspect]
     Dosage: 400 MG IV
     Route: 042
     Dates: start: 20060721, end: 20060722
  4. FLOMAX [Concomitant]
  5. ZOFRAN [Concomitant]
  6. LEXAPRO [Concomitant]
  7. DILAUDID [Concomitant]
  8. ACETAMINOPHEN [Concomitant]
  9. IMODIUM ATIVAN [Concomitant]
  10. ASPIRIN [Concomitant]
  11. NIFEREX [Concomitant]
  12. PRILOSEC [Concomitant]
  13. CALCITONIN-SALMON [Concomitant]
  14. COUMADIN [Concomitant]
  15. FENTANYL [Concomitant]
  16. LIDODERM [Concomitant]

REACTIONS (3)
  - DIVERTICULITIS [None]
  - HEPATOCELLULAR DAMAGE [None]
  - LIVER INJURY [None]
